FAERS Safety Report 11009320 (Version 5)
Quarter: 2020Q2

REPORT INFORMATION
  Report Type: Report from Study
  Country: US (occurrence: US)
  Receive Date: 20150410
  Receipt Date: 20200403
  Transmission Date: 20200713
  Serious: Yes (Other)
  Sender: FDA-Public Use
  Company Number: US-SA-2015SA044205

PATIENT
  Age: 39 Year
  Sex: Male

DRUGS (2)
  1. AGALSIDASE BETA [Suspect]
     Active Substance: AGALSIDASE BETA
     Indication: FABRY^S DISEASE
     Dosage: 70 MG/KG, QOW
     Route: 041
     Dates: start: 20051205, end: 201801
  2. AGALSIDASE BETA [Suspect]
     Active Substance: AGALSIDASE BETA
     Dosage: 75 MG/KG,UNK
     Route: 041

REACTIONS (7)
  - Cardiomyopathy [Unknown]
  - Malaise [Unknown]
  - Arrhythmia [Unknown]
  - Proteinuria [Unknown]
  - Cardiac hypertrophy [Unknown]
  - Gastrointestinal disorder [Not Recovered/Not Resolved]
  - Blood pressure increased [Unknown]

NARRATIVE: CASE EVENT DATE: 201504
